FAERS Safety Report 18331342 (Version 1)
Quarter: 2020Q3

REPORT INFORMATION
  Report Type: Spontaneous
  Country: DE (occurrence: DE)
  Receive Date: 20200930
  Receipt Date: 20200930
  Transmission Date: 20201103
  Serious: Yes (Hospitalization)
  Sender: FDA-Public Use
  Company Number: DE-ENDO PHARMACEUTICALS INC-2020-006431

PATIENT
  Age: 31 Year
  Sex: Female

DRUGS (2)
  1. QUETIAPINE IR [Suspect]
     Active Substance: QUETIAPINE
     Indication: PRODUCT USED FOR UNKNOWN INDICATION
     Dosage: 3 G, SINGLE
     Route: 048
  2. QUETIAPINE FUMARATE. [Suspect]
     Active Substance: QUETIAPINE FUMARATE
     Indication: PRODUCT USED FOR UNKNOWN INDICATION
     Dosage: 14 G, SINGLE
     Route: 048

REACTIONS (4)
  - Somnolence [Recovered/Resolved]
  - Toxicity to various agents [Recovering/Resolving]
  - Bezoar [Recovering/Resolving]
  - Suicide attempt [Recovering/Resolving]
